FAERS Safety Report 24034814 (Version 1)
Quarter: 2024Q2

REPORT INFORMATION
  Report Type: Spontaneous
  Country: US (occurrence: None)
  Receive Date: 20240628
  Receipt Date: 20240628
  Transmission Date: 20240716
  Serious: Yes (Other)
  Sender: FDA-Public Use
  Company Number: None

PATIENT
  Age: 82 Year
  Sex: 0

DRUGS (1)
  1. CAPECITABINE [Suspect]
     Active Substance: CAPECITABINE
     Dosage: 1000 MG 2 WKS ON, 1 WK OFF ORAL
     Route: 048

REACTIONS (6)
  - Therapy cessation [None]
  - Red blood cell count decreased [None]
  - Haematochezia [None]
  - Fatigue [None]
  - Pulmonary oedema [None]
  - Intra-abdominal fluid collection [None]
